FAERS Safety Report 9462553 (Version 1)
Quarter: 2013Q3

REPORT INFORMATION
  Report Type: Spontaneous
  Country: FR (occurrence: FR)
  Receive Date: 20130816
  Receipt Date: 20130816
  Transmission Date: 20140515
  Serious: Yes (Hospitalization)
  Sender: FDA-Public Use
  Company Number: FR-ABBOTT-13X-056-1133283-00

PATIENT
  Age: 65 Year
  Sex: Female

DRUGS (5)
  1. DEPAKINE [Suspect]
     Indication: EPILEPSY
     Route: 048
  2. VIMPAT [Suspect]
     Indication: EPILEPSY
     Route: 048
  3. RIVOTRIL [Suspect]
     Indication: EPILEPSY
     Route: 048
  4. LEVOTHYROX [Concomitant]
     Indication: PRODUCT USED FOR UNKNOWN INDICATION
  5. SPECIAFOLDINE [Concomitant]
     Indication: PRODUCT USED FOR UNKNOWN INDICATION

REACTIONS (4)
  - Myelodysplastic syndrome [Not Recovered/Not Resolved]
  - Thrombocytopenia [Not Recovered/Not Resolved]
  - Asthenia [Not Recovered/Not Resolved]
  - Malaise [Not Recovered/Not Resolved]
